FAERS Safety Report 22101493 (Version 1)
Quarter: 2023Q1

REPORT INFORMATION
  Report Type: Spontaneous
  Country: CN (occurrence: CN)
  Receive Date: 20230316
  Receipt Date: 20230316
  Transmission Date: 20230417
  Serious: No
  Sender: FDA-Public Use
  Company Number: CN-PADAGIS-2023PAD00292

PATIENT

DRUGS (11)
  1. CETIRIZINE HYDROCHLORIDE [Suspect]
     Active Substance: CETIRIZINE HYDROCHLORIDE
     Indication: Dermatitis
     Dosage: UNK
     Route: 048
  2. CETIRIZINE HYDROCHLORIDE [Suspect]
     Active Substance: CETIRIZINE HYDROCHLORIDE
     Indication: Eczema
  3. MOMETASONE FUROATE [Suspect]
     Active Substance: MOMETASONE FUROATE
     Indication: Dermatitis
     Dosage: UNK
     Route: 061
  4. MOMETASONE FUROATE [Suspect]
     Active Substance: MOMETASONE FUROATE
     Indication: Eczema
  5. LORATADINE [Suspect]
     Active Substance: LORATADINE
     Indication: Dermatitis
     Dosage: UNK
     Route: 048
  6. LORATADINE [Suspect]
     Active Substance: LORATADINE
     Indication: Eczema
  7. EBASTINE [Suspect]
     Active Substance: EBASTINE
     Indication: Dermatitis
     Dosage: UNK
     Route: 048
  8. EBASTINE [Suspect]
     Active Substance: EBASTINE
     Indication: Eczema
  9. HALOMETASONE [Suspect]
     Active Substance: HALOMETASONE
     Indication: Dermatitis
     Dosage: UNK
     Route: 061
  10. HALOMETASONE [Suspect]
     Active Substance: HALOMETASONE
     Indication: Eczema
  11. METFORMIN [Concomitant]
     Active Substance: METFORMIN HYDROCHLORIDE
     Indication: Type 2 diabetes mellitus
     Dosage: 0.5 G, TID
     Route: 048

REACTIONS (2)
  - Drug ineffective [Unknown]
  - Product use in unapproved indication [Unknown]

NARRATIVE: CASE EVENT DATE: 20200101
